FAERS Safety Report 8361628-X (Version None)
Quarter: 2012Q2

REPORT INFORMATION
  Report Type: 
  Country: None (occurrence: None)
  Receive Date: 20120515
  Receipt Date: 20120509
  Transmission Date: 20120825
  Serious: Yes (Life-Threatening, Hospitalization)
  Sender: FDA-Public Use
  Company Number: PHHY2012DE039776

PATIENT
  Age: 32 Year
  Sex: Female

DRUGS (1)
  1. GILENYA [Suspect]
     Indication: PROGRESSIVE MULTIPLE SCLEROSIS
     Dosage: 0.5 MG, QD
     Route: 048

REACTIONS (9)
  - C-REACTIVE PROTEIN INCREASED [None]
  - VENTRICULAR HYPERKINESIA [None]
  - HEADACHE [None]
  - MYOGLOBIN BLOOD INCREASED [None]
  - DYSPNOEA [None]
  - RESPIRATORY DISORDER [None]
  - PNEUMONIA [None]
  - TROPONIN INCREASED [None]
  - PNEUMONIA ASPIRATION [None]
